FAERS Safety Report 22266504 (Version 1)
Quarter: 2023Q2

REPORT INFORMATION
  Report Type: Spontaneous
  Country: DE (occurrence: DE)
  Receive Date: 20230428
  Receipt Date: 20230428
  Transmission Date: 20230722
  Serious: Yes (Other)
  Sender: FDA-Public Use
  Company Number: DE-TEVA-2023-DE-2880435

PATIENT

DRUGS (12)
  1. BORTEZOMIB [Suspect]
     Active Substance: BORTEZOMIB
     Indication: Plasma cell myeloma refractory
     Route: 065
  2. DEXAMETHASONE [Suspect]
     Active Substance: DEXAMETHASONE
     Indication: Plasma cell myeloma refractory
     Route: 065
  3. DEXAMETHASONE [Suspect]
     Active Substance: DEXAMETHASONE
     Dosage: AS A PART OF KRD-PACE REGIMEN; ORAL DEXAMETHASONE 40MG ON DAYS 1, 2, 3 AND 4
     Route: 048
  4. LENALIDOMIDE [Suspect]
     Active Substance: LENALIDOMIDE
     Indication: Plasma cell myeloma refractory
     Dosage: AS A PART OF KRD-PACE REGIMEN
     Route: 065
  5. CISPLATIN [Suspect]
     Active Substance: CISPLATIN
     Indication: Plasma cell myeloma refractory
     Dosage: 10 MG/M2 DAILY; AS A PART OF KRD-PACE REGIMEN; CONTINUOUS IV INFUSIONS FROM DAY 1-4, WHICH CONSISTED
     Route: 041
  6. DOXORUBICIN [Suspect]
     Active Substance: DOXORUBICIN
     Indication: Plasma cell myeloma refractory
     Dosage: 10 MG/M2 DAILY; AS A PART OF KRD-PACE REGIMEN; CONTINUOUS IV INFUSIONS FROM DAY 1-4, WHICH CONSISTED
     Route: 041
  7. ETOPOSIDE [Suspect]
     Active Substance: ETOPOSIDE
     Indication: Plasma cell myeloma refractory
     Dosage: 40 MG/M2 DAILY; AS A PART OF KRD-PACE REGIMEN; CONTINUOUS IV INFUSIONS FROM DAY 1-4, WHICH CONSISTED
     Route: 041
  8. MELPHALAN [Suspect]
     Active Substance: MELPHALAN
     Indication: Plasma cell myeloma refractory
     Route: 065
  9. DARATUMUMAB [Suspect]
     Active Substance: DARATUMUMAB
     Indication: Plasma cell myeloma refractory
     Route: 065
  10. THALIDOMIDE [Suspect]
     Active Substance: THALIDOMIDE
     Indication: Plasma cell myeloma refractory
     Route: 065
  11. CARFILZOMIB [Suspect]
     Active Substance: CARFILZOMIB
     Indication: Plasma cell myeloma refractory
     Dosage: AS A PART OF KRD-PACE REGIMEN
     Route: 065
  12. CYCLOPHOSPHAMIDE [Suspect]
     Active Substance: CYCLOPHOSPHAMIDE
     Indication: Plasma cell myeloma refractory
     Dosage: 400 MG/M2 DAILY; AS A PART OF KRD-PACE REGIMEN; CONTINUOUS IV INFUSIONS FROM DAY 1-4, WHICH CONSISTE
     Route: 041

REACTIONS (6)
  - Drug ineffective [Unknown]
  - Neutropenia [Unknown]
  - Febrile neutropenia [Unknown]
  - Lymphopenia [Unknown]
  - Thrombocytopenia [Unknown]
  - Mucosal inflammation [Unknown]
